FAERS Safety Report 9479197 (Version 12)
Quarter: 2014Q1

REPORT INFORMATION
  Report Type: Report from Study
  Country: CA (occurrence: CA)
  Receive Date: 20130827
  Receipt Date: 20140121
  Transmission Date: 20141002
  Serious: Yes (Hospitalization, Other)
  Sender: FDA-Public Use
  Company Number: CA-ROCHE-1250012

PATIENT
  Age: 45 Year
  Sex: Female
  Weight: 96 kg

DRUGS (11)
  1. AVASTIN [Suspect]
     Indication: GLIOBLASTOMA
     Route: 042
     Dates: start: 20130703
  2. AVASTIN [Suspect]
     Route: 042
     Dates: start: 20130821
  3. AVASTIN [Suspect]
     Route: 042
     Dates: start: 20131016
  4. DECADRON [Suspect]
     Indication: GLIOBLASTOMA
     Route: 048
  5. DECADRON [Suspect]
     Route: 048
  6. DILANTIN [Suspect]
     Indication: CONVULSION
     Route: 042
  7. DIAMICRON [Concomitant]
  8. PANTOLOC [Concomitant]
  9. PERCOCET [Concomitant]
     Route: 065
  10. JANUVIA [Concomitant]
  11. VITAMIN B12 [Concomitant]
     Route: 065

REACTIONS (11)
  - Convulsion [Recovering/Resolving]
  - Hypersensitivity [Recovering/Resolving]
  - Skin ulcer [Recovering/Resolving]
  - Hypertension [Recovered/Resolved]
  - Malignant neoplasm progression [Unknown]
  - Amnesia [Unknown]
  - Diarrhoea [Recovered/Resolved]
  - White blood cell count decreased [Unknown]
  - Skin disorder [Not Recovered/Not Resolved]
  - Skin striae [Not Recovered/Not Resolved]
  - Confusional state [Unknown]
